FAERS Safety Report 9912910 (Version 2)
Quarter: 2014Q1

REPORT INFORMATION
  Report Type: Spontaneous
  Country: CN (occurrence: None)
  Receive Date: 20140214
  Receipt Date: 20140225
  Transmission Date: 20141002
  Serious: Yes (Hospitalization)
  Sender: FDA-Public Use
  Company Number: 2014P1001051

PATIENT
  Age: 7 Year
  Sex: Female

DRUGS (1)
  1. ALBENDAZOLE [Suspect]
     Indication: HELMINTHIC INFECTION
     Route: 048
     Dates: start: 20140124, end: 20140124

REACTIONS (17)
  - Erythema [None]
  - Rash generalised [None]
  - Drug hypersensitivity [None]
  - Dermatitis [None]
  - Henoch-Schonlein purpura [None]
  - Respiratory tract infection [None]
  - Abdominal pain [None]
  - Henoch-Schonlein purpura [None]
  - Pharyngeal disorder [None]
  - Tonsillar hypertrophy [None]
  - Oedema peripheral [None]
  - Blood alkaline phosphatase increased [None]
  - Blood lactate dehydrogenase increased [None]
  - Albumin globulin ratio decreased [None]
  - Blood bicarbonate decreased [None]
  - Blood sodium decreased [None]
  - Blood creatinine decreased [None]
